FAERS Safety Report 6948073-6 (Version None)
Quarter: 2010Q3

REPORT INFORMATION
  Report Type: 
  Country: None (occurrence: None)
  Receive Date: 20100828
  Receipt Date: 20091015
  Transmission Date: 20110219
  Serious: No
  Sender: FDA-Public Use
  Company Number: US-ABBOTT-09P-163-0603577-00

PATIENT
  Sex: Female
  Weight: 92.162 kg

DRUGS (10)
  1. NIASPAN [Suspect]
     Indication: BLOOD CHOLESTEROL INCREASED
     Route: 048
     Dates: end: 20091015
  2. TRILIPIX [Suspect]
     Indication: BLOOD CHOLESTEROL INCREASED
     Route: 048
     Dates: end: 20090901
  3. LEVOTHYROXINE [Concomitant]
     Indication: THYROID DISORDER
  4. SIMVASTATIN [Concomitant]
     Indication: PRODUCT USED FOR UNKNOWN INDICATION
     Route: 048
  5. INNOPRAN [Concomitant]
     Indication: PRODUCT USED FOR UNKNOWN INDICATION
     Route: 048
  6. TOPIRAMATE [Concomitant]
     Indication: PRODUCT USED FOR UNKNOWN INDICATION
     Route: 048
  7. HYDROCHLOROTHIAZIDE [Concomitant]
     Indication: PRODUCT USED FOR UNKNOWN INDICATION
     Route: 048
  8. SAVELLA [Concomitant]
     Indication: PRODUCT USED FOR UNKNOWN INDICATION
     Route: 048
  9. LISINOPRIL [Concomitant]
     Indication: PRODUCT USED FOR UNKNOWN INDICATION
     Route: 048
  10. COPAXONE [Concomitant]
     Indication: MULTIPLE SCLEROSIS
     Route: 050

REACTIONS (9)
  - ASTHENIA [None]
  - BLOOD CHOLESTEROL ABNORMAL [None]
  - CHOKING SENSATION [None]
  - DYSPNOEA [None]
  - MIDDLE INSOMNIA [None]
  - MUSCLE DISORDER [None]
  - PRURITUS GENERALISED [None]
  - SENSORY DISTURBANCE [None]
  - SKIN BURNING SENSATION [None]
